FAERS Safety Report 8139304-8 (Version None)
Quarter: 2012Q1

REPORT INFORMATION
  Report Type: 
  Country: None (occurrence: None)
  Receive Date: 20120215
  Receipt Date: 20120209
  Transmission Date: 20120608
  Serious: Yes (Other)
  Sender: FDA-Public Use
  Company Number: US-BAYER-2012-013990

PATIENT
  Sex: Female

DRUGS (1)
  1. MAGNEVIST [Suspect]
     Indication: COMPUTERISED TOMOGRAM

REACTIONS (6)
  - ABNORMAL SENSATION IN EYE [None]
  - FEELING COLD [None]
  - URTICARIA [None]
  - ERYTHEMA [None]
  - SEASONAL ALLERGY [None]
  - FLANK PAIN [None]
